FAERS Safety Report 17246016 (Version 1)
Quarter: 2020Q1

REPORT INFORMATION
  Report Type: Other
  Country: US (occurrence: US)
  Receive Date: 20200108
  Receipt Date: 20200108
  Transmission Date: 20200409
  Serious: Yes (Death, Hospitalization)
  Sender: FDA-Public Use
  Company Number: US-SUNRISE PHARMACEUTICAL, INC.-2078651

PATIENT
  Age: 57 Year
  Sex: Female

DRUGS (1)
  1. OXYCODONE HYDROCHLORIDE. [Suspect]
     Active Substance: OXYCODONE HYDROCHLORIDE
     Indication: DRUG ABUSE
     Route: 042

REACTIONS (8)
  - Hypotension [Recovered/Resolved]
  - Wrong technique in product usage process [Unknown]
  - Pulmonary granuloma [Fatal]
  - Right ventricular failure [Fatal]
  - Pulmonary hypertension [Fatal]
  - Pulmonary embolism [Fatal]
  - Ventricular fibrillation [Fatal]
  - Atrial flutter [Recovered/Resolved]
